FAERS Safety Report 5014393-8 (Version None)
Quarter: 2006Q2

REPORT INFORMATION
  Report Type: 
  Country: None (occurrence: None)
  Receive Date: 20060531
  Receipt Date: 20060526
  Transmission Date: 20061013
  Serious: Yes (Other)
  Sender: FDA-Public Use
  Company Number: GB-RB-3381-2006

PATIENT
  Sex: Female

DRUGS (2)
  1. BUPRENORPHINE HCL [Suspect]
     Indication: DRUG USE FOR UNKNOWN INDICATION
     Route: 065
  2. CHLORDIAZEPOXIDE HCL [Concomitant]
     Indication: ALCOHOL DETOXIFICATION
     Dosage: DOSAGE UNKNOWN
     Route: 065

REACTIONS (1)
  - RESPIRATORY ARREST [None]
